FAERS Safety Report 6520866-9 (Version None)
Quarter: 2009Q4

REPORT INFORMATION
  Report Type: 
  Country: None (occurrence: None)
  Receive Date: 20091229
  Receipt Date: 20091222
  Transmission Date: 20100525
  Serious: Yes (Death, Hospitalization, Other)
  Sender: FDA-Public Use
  Company Number: US-ELI_LILLY_AND_COMPANY-US200912000314

PATIENT
  Sex: Male

DRUGS (14)
  1. EFFIENT [Suspect]
     Indication: ACUTE CORONARY SYNDROME
     Dosage: 60 MG, UNK
     Dates: start: 20091105, end: 20091105
  2. EFFIENT [Suspect]
     Dosage: 10 MG, DAILY (1/D)
     Dates: start: 20091106
  3. COREG [Concomitant]
     Dosage: 6.25 MG, 2/D
  4. ASPIRIN [Concomitant]
     Dosage: 81 MG, DAILY (1/D)
  5. NEXIUM [Concomitant]
     Dosage: 40 MG, 2/D
  6. IMDUR [Concomitant]
     Dosage: 30 MG, DAILY (1/D)
  7. LASIX [Concomitant]
     Dosage: 40 MG, DAILY (1/D)
  8. POTASSIUM [Concomitant]
     Dosage: 20 MEQ, 2/D
  9. MEXILETINE [Concomitant]
     Dosage: 200 MG, 2/D
  10. XANAX [Concomitant]
     Dosage: 1 MG, AS NEEDED
  11. LEVOTHYROXINE SODIUM [Concomitant]
     Dosage: 25 UG, DAILY (1/D)
  12. ONDANSETRON [Concomitant]
     Dosage: 4 MG, AS NEEDED
  13. WELLBUTRIN [Concomitant]
     Dosage: 150 MG, 2/D
  14. MILK OF MAGNESIA TAB [Concomitant]
     Dosage: UNK, AS NEEDED

REACTIONS (13)
  - AMNESIA [None]
  - CARDIAC FAILURE CONGESTIVE [None]
  - DEPRESSION [None]
  - DISORIENTATION [None]
  - DYSPHAGIA [None]
  - ELECTROLYTE IMBALANCE [None]
  - FALL [None]
  - INSOMNIA [None]
  - LETHARGY [None]
  - MUSCULAR WEAKNESS [None]
  - PHARYNGEAL DISORDER [None]
  - PHARYNGEAL HYPOAESTHESIA [None]
  - VENTRICULAR TACHYCARDIA [None]
